FAERS Safety Report 9303403 (Version 2)
Quarter: 2013Q3

REPORT INFORMATION
  Report Type: Spontaneous
  Country: US (occurrence: US)
  Receive Date: 20130522
  Receipt Date: 20130801
  Transmission Date: 20140515
  Serious: Yes (Other)
  Sender: FDA-Public Use
  Company Number: US-BAYER-2013-063636

PATIENT
  Age: 31 Year
  Sex: Female

DRUGS (10)
  1. YASMIN [Suspect]
     Dosage: UNK
     Dates: start: 2004
  2. ZANTAC [Concomitant]
  3. MYTUSSIN AC [Concomitant]
  4. AMOXICILLIN [Concomitant]
  5. TUSSIONEX [Concomitant]
  6. ZITHROMAX [Concomitant]
  7. FELDENE [Concomitant]
  8. PERCOCET [Concomitant]
  9. EPIPEN [Concomitant]
  10. ADVAIR [Concomitant]

REACTIONS (16)
  - Pulmonary embolism [None]
  - Injury [None]
  - Pain [None]
  - General physical health deterioration [None]
  - Anxiety [None]
  - Emotional distress [None]
  - Pain [None]
  - Dyspnoea [None]
  - Chest discomfort [None]
  - Back pain [None]
  - Pain in extremity [None]
  - Arthralgia [None]
  - Dyspnoea exertional [None]
  - Chest pain [None]
  - Pleurisy [None]
  - Thrombosis [None]
